FAERS Safety Report 5702429-8 (Version None)
Quarter: 2008Q2

REPORT INFORMATION
  Report Type: 
  Country: None (occurrence: None)
  Receive Date: 20080411
  Receipt Date: 20080407
  Transmission Date: 20081010
  Serious: Yes (Death, Hospitalization)
  Sender: FDA-Public Use
  Company Number: CA-BRISTOL-MYERS SQUIBB COMPANY-14142079

PATIENT
  Age: 48 Year
  Sex: Male

DRUGS (6)
  1. DIDANOSINE [Suspect]
     Indication: HIV INFECTION
  2. TENOFOVIR [Suspect]
     Indication: HIV INFECTION
  3. LOPINAVIR AND RITONAVIR [Suspect]
     Indication: HIV INFECTION
  4. FUROSEMIDE [Suspect]
  5. SPIRONOLACTONE [Suspect]
  6. NAPROXEN [Suspect]
     Indication: BACK PAIN

REACTIONS (1)
  - RENAL FAILURE [None]
